FAERS Safety Report 14781603 (Version 2)
Quarter: 2018Q4

REPORT INFORMATION
  Report Type: Spontaneous
  Country: US (occurrence: US)
  Receive Date: 20180420
  Receipt Date: 20181116
  Transmission Date: 20190204
  Serious: Yes (Death)
  Sender: FDA-Public Use
  Company Number: US-ROCHE-2106295

PATIENT
  Age: 51 Year
  Sex: Male

DRUGS (13)
  1. FISH OIL [Concomitant]
     Active Substance: FISH OIL
  2. WELLBUTRIN [Concomitant]
     Active Substance: BUPROPION HYDROCHLORIDE
  3. FLOMAX [Concomitant]
     Active Substance: TAMSULOSIN HYDROCHLORIDE
  4. SILVADENE [Concomitant]
     Active Substance: SILVER SULFADIAZINE
  5. BACLOFEN. [Concomitant]
     Active Substance: BACLOFEN
  6. VITAMIN C [Concomitant]
     Active Substance: ASCORBIC ACID
  7. OCREVUS [Suspect]
     Active Substance: OCRELIZUMAB
     Indication: PROGRESSIVE RELAPSING MULTIPLE SCLEROSIS
     Route: 065
     Dates: start: 20170731, end: 20170815
  8. OCREVUS [Suspect]
     Active Substance: OCRELIZUMAB
     Indication: EXPANDED DISABILITY STATUS SCALE SCORE INCREASED
  9. LEXAPRO [Concomitant]
     Active Substance: ESCITALOPRAM OXALATE
  10. ANDRODERM [Concomitant]
     Active Substance: TESTOSTERONE
  11. COLACE [Concomitant]
     Active Substance: DOCUSATE SODIUM
  12. BACTRIM [Concomitant]
     Active Substance: SULFAMETHOXAZOLE\TRIMETHOPRIM
     Route: 065
  13. GABAPENTIN. [Concomitant]
     Active Substance: GABAPENTIN

REACTIONS (1)
  - Infection [Fatal]

NARRATIVE: CASE EVENT DATE: 20171229
